FAERS Safety Report 10026330 (Version 2)
Quarter: 2014Q1

REPORT INFORMATION
  Report Type: Spontaneous
  Country: US (occurrence: US)
  Receive Date: 20140321
  Receipt Date: 20140321
  Transmission Date: 20141002
  Serious: No
  Sender: FDA-Public Use
  Company Number: US-ALLERGAN-1306358US

PATIENT
  Age: 81 Year
  Sex: Female

DRUGS (12)
  1. LUMIGAN [Suspect]
     Indication: GLAUCOMA
     Dosage: 2 GTT, QHS
     Route: 047
  2. AZOPT [Concomitant]
     Indication: GLAUCOMA
     Dosage: 2 GTT, BID
     Route: 047
  3. SYSTANE [Concomitant]
     Indication: DRY EYE
     Dosage: 2 GTT, PRN
     Route: 047
  4. PANTAPRAZOLE [Concomitant]
     Indication: GASTROOESOPHAGEAL REFLUX DISEASE
     Dosage: 40 MG, QD
     Route: 048
  5. METOPROLOL [Concomitant]
     Indication: HYPERTENSION
     Dosage: 50 MG, BID
     Route: 048
  6. GABAPENTIN [Concomitant]
     Indication: PAIN
     Dosage: 100 MG, BID
     Route: 048
  7. OCCUVITE [Concomitant]
     Indication: SUPPLEMENTATION THERAPY
     Dosage: UNK, QD
     Route: 048
  8. FISH OIL [Concomitant]
     Indication: SUPPLEMENTATION THERAPY
     Dosage: 1200 MG, QD
     Route: 048
  9. CALCIUM CITRATE W/COLECALCIFEROL [Concomitant]
     Indication: SUPPLEMENTATION THERAPY
     Dosage: UNK UNK, QD
     Route: 048
  10. ADVIL                              /00044201/ [Concomitant]
     Indication: BACK PAIN
     Dosage: UNK UNK, PRN
     Route: 048
  11. ASA [Concomitant]
     Indication: PROPHYLAXIS
     Dosage: 81 MG, QD
     Route: 048
  12. NASAL MIST SINUS [Concomitant]
     Indication: SEASONAL ALLERGY
     Dosage: UNK, PRN

REACTIONS (2)
  - Hair growth abnormal [Unknown]
  - Hair growth abnormal [Unknown]
